FAERS Safety Report 8531709-6 (Version None)
Quarter: 2012Q3

REPORT INFORMATION
  Report Type: 
  Country: None (occurrence: None)
  Receive Date: 20120723
  Receipt Date: 20120712
  Transmission Date: 20120928
  Serious: Yes (Other)
  Sender: FDA-Public Use
  Company Number: JP-VERTEX PHARMACEUTICALS INC.-AE-2012-010480

PATIENT
  Age: 70 Year
  Sex: Female

DRUGS (7)
  1. CEFAZOLIN SODIUM [Concomitant]
     Route: 048
  2. TELAVIC (TELAPREVIR) [Suspect]
     Indication: HEPATITIS C
     Route: 048
     Dates: start: 20120509, end: 20120518
  3. RIBAVIRIN [Concomitant]
     Route: 048
     Dates: start: 20120509, end: 20120521
  4. PEGINTERFERON ALFA-2B [Concomitant]
     Route: 058
     Dates: start: 20120509, end: 20120516
  5. NORVASC [Concomitant]
     Route: 048
  6. MAGLAX [Concomitant]
     Route: 048
  7. FLAVITAN [Concomitant]
     Route: 048

REACTIONS (2)
  - ANAEMIA [None]
  - RENAL IMPAIRMENT [None]
